FAERS Safety Report 4656471-9 (Version None)
Quarter: 2005Q2

REPORT INFORMATION
  Report Type: 
  Country: None (occurrence: None)
  Receive Date: 20050509
  Receipt Date: 20050114
  Transmission Date: 20051028
  Serious: Yes (Death, Other)
  Sender: FDA-Public Use
  Company Number: US-AMGEN-KDL112240

PATIENT
  Sex: Female

DRUGS (2)
  1. ENBREL [Suspect]
     Indication: RHEUMATOID ARTHRITIS
     Dates: start: 19950401, end: 20031101
  2. METHOTREXATE [Concomitant]

REACTIONS (7)
  - ABDOMINAL OPERATION [None]
  - DEATH [None]
  - GASTROINTESTINAL DISORDER [None]
  - PNEUMONITIS [None]
  - PSEUDOMONAS INFECTION [None]
  - PULMONARY FIBROSIS [None]
  - SEPSIS [None]
